FAERS Safety Report 4383087-4 (Version None)
Quarter: 2004Q2

REPORT INFORMATION
  Report Type: 
  Country: None (occurrence: None)
  Receive Date: 20040618
  Receipt Date: 20040617
  Transmission Date: 20050107
  Serious: Yes (Death, Congenital Anomaly)
  Sender: FDA-Public Use
  Company Number: S04-USA-02755-01

PATIENT
  Age: 19 Year
  Sex: Female

DRUGS (2)
  1. LEXAPRO [Suspect]
     Indication: BIPOLAR DISORDER
     Dosage: 10 MG QD PO
     Route: 048
     Dates: start: 20030101, end: 20030101
  2. LEXAPRO [Suspect]
     Indication: BIPOLAR DISORDER
     Dosage: 10 MG QD PO
     Route: 048
     Dates: start: 20030101, end: 20030901

REACTIONS (7)
  - ABORTION INDUCED [None]
  - COMPLICATIONS OF MATERNAL EXPOSURE TO THERAPEUTIC DRUGS [None]
  - LIMB MALFORMATION [None]
  - OLIGOHYDRAMNIOS [None]
  - POTTER'S SYNDROME [None]
  - PREGNANCY [None]
  - STILLBIRTH [None]
